FAERS Safety Report 18073650 (Version 7)
Quarter: 2021Q4

REPORT INFORMATION
  Report Type: Report from Study
  Country: US (occurrence: US)
  Receive Date: 20200727
  Receipt Date: 20211008
  Transmission Date: 20220303
  Serious: Yes (Hospitalization, Other)
  Sender: FDA-Public Use
  Company Number: US-SHIRE-US202023374

PATIENT
  Age: 47 Year
  Sex: Male

DRUGS (3)
  1. HEMOFIL [Suspect]
     Active Substance: ANTIHEMOPHILIC FACTOR HUMAN
     Indication: Product used for unknown indication
     Dosage: 4000 INTERNATIONAL UNIT
     Route: 042
  2. HEMOFIL [Suspect]
     Active Substance: ANTIHEMOPHILIC FACTOR HUMAN
     Dosage: 4000 INTERNATIONAL UNIT, Q12H
     Route: 042
  3. HEMOFIL [Suspect]
     Active Substance: ANTIHEMOPHILIC FACTOR HUMAN
     Dosage: 4000 INTERNATIONAL UNIT, 3/WEEK
     Route: 065

REACTIONS (7)
  - Nephrolithiasis [Recovered/Resolved]
  - Haemorrhage [Unknown]
  - Haemarthrosis [Unknown]
  - Kidney infection [Unknown]
  - Nervous system disorder [Unknown]
  - Back pain [Unknown]
  - Complication associated with device [Unknown]

NARRATIVE: CASE EVENT DATE: 20200715
